FAERS Safety Report 4419517-9 (Version None)
Quarter: 2004Q3

REPORT INFORMATION
  Report Type: 
  Country: None (occurrence: None)
  Receive Date: 20040809
  Receipt Date: 20040206
  Transmission Date: 20050211
  Serious: Yes (Hospitalization)
  Sender: FDA-Public Use
  Company Number: 03-12-1604

PATIENT
  Age: 73 Year
  Sex: Female

DRUGS (5)
  1. PAXIL [Suspect]
     Indication: DRUG USE FOR UNKNOWN INDICATION
     Dosage: 20MG UNKNOWN
     Route: 048
     Dates: start: 20030923, end: 20031116
  2. STALEVO 100 [Suspect]
     Indication: PARKINSON'S DISEASE
     Route: 048
     Dates: start: 20030924, end: 20031116
  3. AMITRIPTYLINE HCL [Suspect]
     Route: 048
     Dates: start: 20031025, end: 20031116
  4. CLOZARIL [Suspect]
     Indication: PARKINSON'S DISEASE
     Route: 048
     Dates: start: 20030801, end: 20031101
  5. AMITRIPTYLINE HCL [Concomitant]
     Route: 048
     Dates: start: 20030923, end: 20031025

REACTIONS (5)
  - DISORIENTATION [None]
  - FALL [None]
  - NAUSEA [None]
  - PNEUMONIA ASPIRATION [None]
  - VOMITING [None]
